FAERS Safety Report 25464376 (Version 1)
Quarter: 2025Q2

REPORT INFORMATION
  Report Type: Report from Study
  Country: US (occurrence: US)
  Receive Date: 20250621
  Receipt Date: 20250621
  Transmission Date: 20250716
  Serious: Yes (Other)
  Sender: AUROBINDO
  Company Number: US-AUROBINDO-AUR-APL-2025-031126

PATIENT
  Age: 81 Year
  Sex: Male

DRUGS (1)
  1. NAFCILLIN [Suspect]
     Active Substance: NAFCILLIN SODIUM
     Indication: Product used for unknown indication
     Route: 065

REACTIONS (1)
  - Drug reaction with eosinophilia and systemic symptoms [Recovering/Resolving]
